FAERS Safety Report 9240719 (Version 1)
Quarter: 2013Q1

REPORT INFORMATION
  Report Type: Spontaneous
  Country: US (occurrence: None)
  Receive Date: 20121120
  Receipt Date: 20121120
  Transmission Date: 20140127
  Serious: No
  Sender: FDA-Public Use
  Company Number: 1000037559

PATIENT
  Age: 23 Year
  Sex: Female

DRUGS (3)
  1. VIIBRYD [Suspect]
     Indication: ANXIETY
     Route: 048
     Dates: start: 201206, end: 201206
  2. VIIBRYD [Suspect]
     Indication: ANXIETY
     Route: 048
     Dates: start: 201206, end: 2012
  3. ACID REFLUX MEDICATION [Concomitant]

REACTIONS (4)
  - Muscle twitching [None]
  - Sleep terror [None]
  - Hallucination, auditory [None]
  - Off label use [None]
